FAERS Safety Report 9735853 (Version 1)
Quarter: 2013Q4

REPORT INFORMATION
  Report Type: Spontaneous
  Country: US (occurrence: US)
  Receive Date: 20131206
  Receipt Date: 20131206
  Transmission Date: 20140711
  Serious: No
  Sender: FDA-Public Use
  Company Number: US-GILEAD-2009-0024095

PATIENT
  Sex: Female

DRUGS (12)
  1. LETAIRIS [Suspect]
     Indication: PULMONARY ARTERIAL HYPERTENSION
     Dates: end: 20090821
  2. FUROSEMIDE [Concomitant]
  3. SPIRONOLACTONE [Concomitant]
  4. NALTREXONE [Concomitant]
  5. ALLOPURINOL [Concomitant]
  6. RENAGEL [Concomitant]
  7. XIFAXAN [Concomitant]
  8. CALCIUM [Concomitant]
  9. VITAMIN A [Concomitant]
  10. VITAMIN C [Concomitant]
  11. VITAMIN D [Concomitant]
  12. MVI [Concomitant]

REACTIONS (3)
  - Ocular hyperaemia [Unknown]
  - Eye swelling [Unknown]
  - Eye disorder [Unknown]
